FAERS Safety Report 14680763 (Version 1)
Quarter: 2018Q1

REPORT INFORMATION
  Report Type: Spontaneous
  Country: US (occurrence: US)
  Receive Date: 20180326
  Receipt Date: 20180326
  Transmission Date: 20180509
  Serious: No
  Sender: FDA-Public Use
  Company Number: US-TEIKOKU PHARMA USA-TPU2018-00136

PATIENT
  Sex: Female
  Weight: 77.63 kg

DRUGS (2)
  1. LIDOCAINE PATCH [Suspect]
     Active Substance: LIDOCAINE
     Indication: ARTHRITIS
     Route: 062
  2. MEDICATION FOR IRRITABLE BOWEL SYNDROME AND DIABETES [Concomitant]

REACTIONS (1)
  - Headache [Unknown]
